FAERS Safety Report 15584048 (Version 1)
Quarter: 2018Q4

REPORT INFORMATION
  Report Type: Report from Study
  Country: None (occurrence: US)
  Receive Date: 20181105
  Receipt Date: 20181105
  Transmission Date: 20190205
  Serious: Yes (Other)
  Sender: FDA-Public Use
  Company Number: US-ABBVIE-18K-163-2480372-00

PATIENT
  Sex: Female

DRUGS (2)
  1. HUMIRA [Suspect]
     Active Substance: ADALIMUMAB
     Indication: RHEUMATOID ARTHRITIS
     Route: 058
     Dates: end: 201808
  2. REGLAN [Concomitant]
     Active Substance: METOCLOPRAMIDE HYDROCHLORIDE
     Indication: GASTRIC DISORDER

REACTIONS (6)
  - Oesophageal operation [Recovering/Resolving]
  - Drug effect decreased [Not Recovered/Not Resolved]
  - Gastric disorder [Recovering/Resolving]
  - Rheumatoid arthritis [Unknown]
  - Surgical failure [Recovering/Resolving]
  - Gastric operation [Recovering/Resolving]
